FAERS Safety Report 6315827-9 (Version None)
Quarter: 2009Q3

REPORT INFORMATION
  Report Type: 
  Country: None (occurrence: None)
  Receive Date: 20090820
  Receipt Date: 20071010
  Transmission Date: 20100115
  Serious: Yes (Other)
  Sender: FDA-Public Use
  Company Number: US-ASTRAZENECA-2006UW08328

PATIENT
  Age: 40 Year
  Sex: Female
  Weight: 80.3 kg

DRUGS (7)
  1. SEROQUEL [Suspect]
     Indication: SCHIZOPHRENIA
     Dosage: 25-400 MG
     Route: 048
     Dates: start: 19980401, end: 20030301
  2. SEROQUEL [Suspect]
     Route: 048
     Dates: start: 20000317, end: 20030217
  3. PROZAC [Concomitant]
     Dosage: 20-40 MG
     Route: 048
     Dates: start: 19960523
  4. TRAZODONE HCL [Concomitant]
     Dosage: 50-300 MG
     Route: 048
     Dates: start: 19950908
  5. ZYPREXA [Concomitant]
     Dosage: 5-10 MG
     Dates: start: 19970828
  6. RISPERDAL [Concomitant]
     Dosage: 2-4 MG
     Dates: start: 20001031
  7. NEURONTIN [Concomitant]
     Dosage: 300-900 MG
     Dates: start: 20000417

REACTIONS (4)
  - DIABETES MELLITUS [None]
  - DIABETIC NEUROPATHY [None]
  - GESTATIONAL DIABETES [None]
  - TYPE 2 DIABETES MELLITUS [None]
